FAERS Safety Report 9996475 (Version 7)
Quarter: 2015Q1

REPORT INFORMATION
  Report Type: Report from Study
  Country: US (occurrence: US)
  Receive Date: 20140311
  Receipt Date: 20150226
  Transmission Date: 20150721
  Serious: Yes (Hospitalization, Other)
  Sender: FDA-Public Use
  Company Number: US-SA-2014SA028075

PATIENT
  Age: 45 Year
  Sex: Female

DRUGS (2)
  1. AUBAGIO [Suspect]
     Active Substance: TERIFLUNOMIDE
     Indication: MULTIPLE SCLEROSIS
     Route: 048
     Dates: start: 20131116
  2. AUBAGIO [Suspect]
     Active Substance: TERIFLUNOMIDE
     Indication: MULTIPLE SCLEROSIS
     Route: 048

REACTIONS (12)
  - Accident [Unknown]
  - Pneumonia [Recovered/Resolved]
  - Alopecia [Recovering/Resolving]
  - Urticaria [Unknown]
  - Weight decreased [Unknown]
  - Fatigue [Unknown]
  - Mobility decreased [Unknown]
  - Anxiety [Unknown]
  - Emotional disorder [Unknown]
  - Tendon rupture [Unknown]
  - Drug dose omission [Unknown]
  - Somnolence [Unknown]

NARRATIVE: CASE EVENT DATE: 2014
